FAERS Safety Report 7959652-1 (Version None)
Quarter: 2011Q4

REPORT INFORMATION
  Report Type: 
  Country: None (occurrence: None)
  Receive Date: 20111206
  Receipt Date: 20111130
  Transmission Date: 20120403
  Serious: Yes (Hospitalization)
  Sender: FDA-Public Use
  Company Number: US-AMGEN-USASP2011053870

PATIENT
  Age: 54 Year
  Sex: Female

DRUGS (3)
  1. ENBREL [Suspect]
     Dosage: 25 MG, 2 TIMES/WK
     Dates: start: 20010501, end: 20110501
  2. ORENCIA [Concomitant]
     Dosage: UNK
     Dates: start: 20110501
  3. ENBREL [Suspect]
     Indication: RHEUMATOID ARTHRITIS
     Dosage: 25 MG, 2 TIMES/WK
     Dates: start: 20111011

REACTIONS (11)
  - WEIGHT INCREASED [None]
  - EYE INFECTION [None]
  - INJECTION SITE PAIN [None]
  - MULTIPLE ALLERGIES [None]
  - COUGH [None]
  - MUSCULOSKELETAL STIFFNESS [None]
  - RIB FRACTURE [None]
  - SKIN IRRITATION [None]
  - SINUSITIS [None]
  - OPEN WOUND [None]
  - DRUG INEFFECTIVE [None]
